FAERS Safety Report 17903136 (Version 2)
Quarter: 2020Q2

REPORT INFORMATION
  Report Type: Report from Study
  Country: CO (occurrence: CO)
  Receive Date: 20200616
  Receipt Date: 20200630
  Transmission Date: 20200714
  Serious: Yes (Hospitalization)
  Sender: FDA-Public Use
  Company Number: NVSC2020CO167576

PATIENT
  Age: 9 Year
  Sex: Female

DRUGS (2)
  1. REVOLADE [Suspect]
     Active Substance: ELTROMBOPAG
     Indication: IMMUNE THROMBOCYTOPENIA
     Dosage: 25 MG, QD
     Route: 048
     Dates: start: 20191119
  2. VITAMIIN C [Concomitant]
     Active Substance: ASCORBIC ACID
     Indication: IMMUNOMODULATORY THERAPY
     Dosage: UNK, QD
     Route: 048

REACTIONS (3)
  - Platelet count decreased [Unknown]
  - Epistaxis [Unknown]
  - Contusion [Recovered/Resolved]

NARRATIVE: CASE EVENT DATE: 20200609
